FAERS Safety Report 24318876 (Version 1)
Quarter: 2024Q3

REPORT INFORMATION
  Report Type: Spontaneous
  Country: US (occurrence: US)
  Receive Date: 20240913
  Receipt Date: 20240913
  Transmission Date: 20241016
  Serious: Yes (Other)
  Sender: BAUSCH AND LOMB
  Company Number: US-BAUSCH-BL-2024-013684

PATIENT
  Age: 47 Year

DRUGS (1)
  1. ELIDEL [Suspect]
     Active Substance: PIMECROLIMUS
     Indication: Product used for unknown indication
     Route: 065

REACTIONS (2)
  - Malignant melanoma [Unknown]
  - Hidradenitis [Unknown]
